FAERS Safety Report 4687401-1 (Version None)
Quarter: 2005Q2

REPORT INFORMATION
  Report Type: 
  Country: None (occurrence: None)
  Receive Date: 20050608
  Receipt Date: 20050509
  Transmission Date: 20051028
  Serious: Yes (Other)
  Sender: FDA-Public Use
  Company Number: 2005073197

PATIENT
  Age: 60 Year
  Sex: Male

DRUGS (3)
  1. GEODON [Suspect]
     Indication: ILL-DEFINED DISORDER
     Dosage: 160 MG (80 MG, 2 IN 1 D),
  2. LITHIUM CARBONATE [Suspect]
     Indication: ILL-DEFINED DISORDER
  3. QUETIAPINE FUMARATE [Suspect]
     Indication: ILL-DEFINED DISORDER

REACTIONS (3)
  - ACUTE CORONARY SYNDROME [None]
  - NEUROLEPTIC MALIGNANT SYNDROME [None]
  - PNEUMONIA [None]
